FAERS Safety Report 8549382-X (Version None)
Quarter: 2012Q3

REPORT INFORMATION
  Report Type: 
  Country: None (occurrence: None)
  Receive Date: 20120730
  Receipt Date: 20120723
  Transmission Date: 20120928
  Serious: Yes (Other)
  Sender: FDA-Public Use
  Company Number: US-ROCHE-1001314

PATIENT
  Sex: Female

DRUGS (1)
  1. ZELBORAF [Suspect]
     Indication: METASTATIC MALIGNANT MELANOMA

REACTIONS (8)
  - SUNBURN [None]
  - RASH [None]
  - NAUSEA [None]
  - DISEASE PROGRESSION [None]
  - DIARRHOEA [None]
  - FATIGUE [None]
  - RASH PUSTULAR [None]
  - DYSGEUSIA [None]
